FAERS Safety Report 4911795-2 (Version None)
Quarter: 2006Q1

REPORT INFORMATION
  Report Type: 
  Country: None (occurrence: None)
  Receive Date: 20060213
  Receipt Date: 20060213
  Transmission Date: 20060701
  Serious: Yes (Death)
  Sender: FDA-Public Use
  Company Number: None

PATIENT
  Sex: Female
  Weight: 67.72 kg

DRUGS (2)
  1. CISPLATIN [Suspect]
     Indication: SQUAMOUS CELL CARCINOMA OF THE CERVIX
     Dosage: 2.6 MG
     Dates: start: 20051128, end: 20051128
  2. TOPOTECAN [Suspect]
     Dosage: 89 MG
     Dates: start: 20051128, end: 20051129

REACTIONS (12)
  - ABDOMINAL DISTENSION [None]
  - BLOOD PRESSURE DECREASED [None]
  - DEPRESSED LEVEL OF CONSCIOUSNESS [None]
  - FALL [None]
  - INTESTINAL PERFORATION [None]
  - NAUSEA [None]
  - NEOPLASM [None]
  - PAIN [None]
  - TACHYCARDIA [None]
  - TACHYPNOEA [None]
  - THERAPEUTIC RESPONSE DECREASED [None]
  - VOMITING [None]
